FAERS Safety Report 7387318-8 (Version None)
Quarter: 2011Q1

REPORT INFORMATION
  Report Type: 
  Country: None (occurrence: None)
  Receive Date: 20110331
  Receipt Date: 20110323
  Transmission Date: 20110831
  Serious: Yes (Other)
  Sender: FDA-Public Use
  Company Number: JP-BRISTOL-MYERS SQUIBB COMPANY-15639404

PATIENT
  Age: 62 Year
  Sex: Male

DRUGS (7)
  1. INTELENCE [Suspect]
     Indication: HIV INFECTION
     Route: 048
     Dates: start: 20091214, end: 20100203
  2. ISENTRESS [Concomitant]
     Indication: HIV INFECTION
     Dosage: TABS
     Route: 048
     Dates: start: 20091210, end: 20091214
  3. VIBRAMYCIN [Concomitant]
     Indication: SYPHILIS
     Dosage: TABS
     Route: 048
     Dates: start: 20091120, end: 20091204
  4. EPIVIR [Concomitant]
     Indication: HIV INFECTION
     Dosage: TABS
     Route: 048
     Dates: start: 20091125, end: 20091210
  5. REYATAZ [Suspect]
     Indication: HIV INFECTION
     Route: 048
     Dates: start: 20091125, end: 20100203
  6. ZERIT [Suspect]
     Indication: HIV INFECTION
     Route: 048
     Dates: start: 20091125, end: 20091210
  7. NORVIR [Suspect]
     Indication: HIV INFECTION
     Route: 048
     Dates: start: 20091125, end: 20100203

REACTIONS (1)
  - UVEITIS [None]
